FAERS Safety Report 4476427-9 (Version None)
Quarter: 2004Q4

REPORT INFORMATION
  Report Type: 
  Country: None (occurrence: None)
  Receive Date: 20041016
  Receipt Date: 20040922
  Transmission Date: 20050328
  Serious: Yes (Life-Threatening, Hospitalization)
  Sender: FDA-Public Use
  Company Number: JP-MERCK-0409USA02137

PATIENT
  Age: 73 Year
  Sex: Male
  Weight: 51 kg

DRUGS (2)
  1. MAXIPIME [Concomitant]
     Indication: PNEUMONIA
     Route: 042
     Dates: start: 20040831, end: 20040831
  2. PRIMAXIN [Suspect]
     Indication: PNEUMONIA
     Route: 042
     Dates: start: 20040901, end: 20040906

REACTIONS (2)
  - LIVER DISORDER [None]
  - PNEUMONIA [None]
